FAERS Safety Report 5988152-3 (Version None)
Quarter: 2008Q4

REPORT INFORMATION
  Report Type: 
  Country: None (occurrence: None)
  Receive Date: 20081208
  Receipt Date: 20081208
  Transmission Date: 20090506
  Serious: Yes (Other)
  Sender: FDA-Public Use
  Company Number: None

PATIENT
  Age: 36 Year
  Sex: Female
  Weight: 90.7194 kg

DRUGS (1)
  1. CREST PRO HEALTH TOOTHPASTE [Suspect]
     Dosage: .5 INCH 3 TIMES PER DAY
     Dates: start: 20081001, end: 20081201

REACTIONS (1)
  - ORAL MUCOSAL EXFOLIATION [None]
